FAERS Safety Report 9470139 (Version 1)
Quarter: 2013Q3

REPORT INFORMATION
  Report Type: Spontaneous
  Country: US (occurrence: None)
  Receive Date: 20130820
  Receipt Date: 20130820
  Transmission Date: 20140515
  Serious: Yes (Disabling)
  Sender: FDA-Public Use
  Company Number: None

PATIENT
  Age: 21 Year
  Sex: Female
  Weight: 76.2 kg

DRUGS (1)
  1. ADDERALL [Suspect]
     Dosage: 1 CAPSULE ?NOT SURE EXACTLY ON THE DATES
     Route: 048

REACTIONS (4)
  - Drug ineffective [None]
  - Depression [None]
  - Product substitution issue [None]
  - Product quality issue [None]
